FAERS Safety Report 8962434 (Version 1)
Quarter: 2012Q4

REPORT INFORMATION
  Report Type: 
  Country: US (occurrence: None)
  Receive Date: 20121211
  Receipt Date: 20121211
  Transmission Date: 20130627
  Serious: No
  Sender: FDA-Public Use
  Company Number: None

PATIENT
  Sex: Male
  Weight: 106.7 kg

DRUGS (5)
  1. PEG/L-ASPARAGINASE [Suspect]
  2. DEXAMETHASONE [Suspect]
  3. CYTARABINE [Suspect]
  4. DOXORUBICIN HYDROCHLORIDE [Suspect]
  5. VINCRISTINE [Suspect]

REACTIONS (1)
  - Blood glucose increased [None]
